FAERS Safety Report 4570630-5 (Version None)
Quarter: 2005Q1

REPORT INFORMATION
  Report Type: 
  Country: None (occurrence: None)
  Receive Date: 20050202
  Receipt Date: 20050202
  Transmission Date: 20050727
  Serious: Yes (Death)
  Sender: FDA-Public Use
  Company Number: None

PATIENT
  Age: 15 Month
  Sex: Male
  Weight: 11.2 kg

DRUGS (7)
  1. METHOTREXATE [Suspect]
     Indication: PINEALOBLASTOMA
     Dosage: 4500MG   X1 OVER 4 HRS   INTRAVENOU
     Route: 042
     Dates: start: 20041018, end: 20041018
  2. CYCLOPHOSPHAMIDE [Suspect]
     Indication: PINEALOBLASTOMA
     Dosage: 730 MG   X2 OVER 1HR   INTRAVENOU
     Route: 042
     Dates: start: 20041016, end: 20041017
  3. CISPLATIN [Concomitant]
  4. VINCRISTINE [Concomitant]
  5. ETOPOSIDE [Concomitant]
  6. MESNA [Concomitant]
  7. NEUPOGEN [Concomitant]

REACTIONS (18)
  - ACUTE RESPIRATORY DISTRESS SYNDROME [None]
  - ANURIA [None]
  - CAECITIS [None]
  - CARDIO-RESPIRATORY ARREST [None]
  - COMPUTERISED TOMOGRAM ABNORMAL [None]
  - DERMATITIS DIAPER [None]
  - DIARRHOEA [None]
  - EMOTIONAL DISTRESS [None]
  - GASTROINTESTINAL DISORDER [None]
  - GRUNTING [None]
  - HAEMODIALYSIS [None]
  - HYPOTENSION [None]
  - LUNG INFILTRATION [None]
  - PALLOR [None]
  - PLEURAL EFFUSION [None]
  - RECTAL PROLAPSE [None]
  - RENAL FAILURE [None]
  - SEPSIS [None]
